FAERS Safety Report 21291937 (Version 1)
Quarter: 2022Q3

REPORT INFORMATION
  Report Type: Spontaneous
  Country: DE (occurrence: DE)
  Receive Date: 20220904
  Receipt Date: 20220904
  Transmission Date: 20221027
  Serious: Yes (Death, Life-Threatening, Other)
  Sender: FDA-Public Use
  Company Number: DE-drreddys-LIT/GER/22/0154028

PATIENT
  Age: 75 Year
  Sex: Female

DRUGS (4)
  1. BOSENTAN [Suspect]
     Active Substance: BOSENTAN
     Indication: Pulmonary hypertension
     Dosage: OVER A COURSE OF 15 MONTHS
  2. TADALAFIL [Suspect]
     Active Substance: TADALAFIL
     Indication: Pulmonary hypertension
  3. TADALAFIL [Suspect]
     Active Substance: TADALAFIL
     Dosage: SWITCHED
  4. MACITENTAN [Suspect]
     Active Substance: MACITENTAN
     Indication: Pulmonary hypertension

REACTIONS (8)
  - Cardiac failure [Fatal]
  - Disease progression [Fatal]
  - Drug ineffective [Unknown]
  - Pulmonary hypertension [Unknown]
  - Haemorrhage [Unknown]
  - Cardiomegaly [Unknown]
  - Pulmonary hypertension [Unknown]
  - Dyspnoea [Unknown]
